FAERS Safety Report 6979104 (Version 2)
Quarter: 2015Q1

REPORT INFORMATION
  Report Type: Spontaneous
  Country: US (occurrence: None)
  Receive Date: 20090420
  Receipt Date: 20150226
  Transmission Date: 20150721
  Serious: Yes (Hospitalization)
  Sender: FDA-Public Use
  Company Number: TPA2009A00586

PATIENT
  Age: 52 Year
  Sex: Female

DRUGS (1)
  1. ACTOS [Suspect]
     Active Substance: PIOGLITAZONE HYDROCHLORIDE
     Indication: DIABETES MELLITUS
     Dosage: 30 MG, 1 IN 1 D, PER ORAL, 45 MG, 1 IN 1 D, PER ORAL
     Route: 048
     Dates: start: 200705

REACTIONS (2)
  - Stent placement [None]
  - Myocardial infarction [None]

NARRATIVE: CASE EVENT DATE: 200903
